FAERS Safety Report 5674529-2 (Version None)
Quarter: 2008Q1

REPORT INFORMATION
  Report Type: 
  Country: None (occurrence: None)
  Receive Date: 20080317
  Receipt Date: 20080306
  Transmission Date: 20080703
  Serious: Yes (Disabling)
  Sender: FDA-Public Use
  Company Number: 2008JP001066

PATIENT
  Age: 56 Year
  Sex: Female

DRUGS (3)
  1. VESICARE [Suspect]
     Indication: HYPERTONIC BLADDER
     Dosage: 5 MG, /D, ORAL
     Route: 048
     Dates: start: 20071220, end: 20071220
  2. MUCOSTA     (REBAMIPIDE) [Concomitant]
  3. ASPIRIN [Concomitant]

REACTIONS (1)
  - ACCOMMODATION DISORDER [None]
